FAERS Safety Report 24017004 (Version 3)
Quarter: 2024Q3

REPORT INFORMATION
  Report Type: Spontaneous
  Country: JP (occurrence: JP)
  Receive Date: 20240626
  Receipt Date: 20240717
  Transmission Date: 20241017
  Serious: Yes (Hospitalization)
  Sender: SANOFI AVENTIS
  Company Number: JP-SAKK-2024SA185510AA

PATIENT

DRUGS (1)
  1. KEVZARA [Suspect]
     Active Substance: SARILUMAB
     Indication: Product used for unknown indication
     Dosage: UNK
     Route: 058
     Dates: end: 2024

REACTIONS (2)
  - Weight fluctuation [Not Recovered/Not Resolved]
  - Physical deconditioning [Not Recovered/Not Resolved]

NARRATIVE: CASE EVENT DATE: 20240601
